FAERS Safety Report 8454815-3 (Version None)
Quarter: 2012Q2

REPORT INFORMATION
  Report Type: 
  Country: None (occurrence: None)
  Receive Date: 20120621
  Receipt Date: 20120613
  Transmission Date: 20120825
  Serious: Yes (Other)
  Sender: FDA-Public Use
  Company Number: US-JNJFOC-20120607895

PATIENT
  Age: 54 Year
  Sex: Male

DRUGS (3)
  1. NEURONTIN [Concomitant]
     Indication: PAIN
  2. HYDROCODONE [Concomitant]
     Indication: PAIN
  3. NUCYNTA ER [Suspect]
     Indication: PAIN
     Route: 048
     Dates: start: 20120604, end: 20120601

REACTIONS (2)
  - DYSPNOEA [None]
  - CHEST DISCOMFORT [None]
